FAERS Safety Report 8601788-6 (Version None)
Quarter: 2012Q3

REPORT INFORMATION
  Report Type: 
  Country: None (occurrence: None)
  Receive Date: 20120817
  Receipt Date: 20120423
  Transmission Date: 20120928
  Serious: Yes (Other)
  Sender: FDA-Public Use
  Company Number: US-BRISTOL-MYERS SQUIBB COMPANY-16517682

PATIENT
  Age: 74 Year
  Sex: Male

DRUGS (1)
  1. SPRYCEL [Suspect]
     Indication: CHRONIC MYELOID LEUKAEMIA
     Dosage: STOPPED ON 10APR2012;18-APR-2012:RESUMED AT HALF DOSE
     Dates: start: 20120201

REACTIONS (3)
  - RASH [None]
  - BONE MARROW FAILURE [None]
  - ANAEMIA [None]
